FAERS Safety Report 17171779 (Version 2)
Quarter: 2019Q4

REPORT INFORMATION
  Report Type: Report from Study
  Country: US (occurrence: US)
  Receive Date: 20191218
  Receipt Date: 20191227
  Transmission Date: 20200122
  Serious: No
  Sender: FDA-Public Use
  Company Number: US-SA-2019SA347970

PATIENT
  Age: 88 Year
  Sex: Male

DRUGS (3)
  1. DUPILUMAB [Suspect]
     Active Substance: DUPILUMAB
     Indication: SINUS DISORDER
     Dosage: 300 MG, QOW
     Route: 058
     Dates: start: 20191106, end: 20191204
  2. DUPILUMAB [Suspect]
     Active Substance: DUPILUMAB
     Indication: ANOSMIA
  3. DUPILUMAB [Suspect]
     Active Substance: DUPILUMAB
     Indication: NASAL POLYPS

REACTIONS (9)
  - Feeling abnormal [Unknown]
  - Asthenia [Unknown]
  - Condition aggravated [Unknown]
  - Peripheral swelling [Unknown]
  - Drug ineffective for unapproved indication [Unknown]
  - Malaise [Unknown]
  - Nasopharyngitis [Unknown]
  - Arthralgia [Unknown]
  - Product use in unapproved indication [Unknown]

NARRATIVE: CASE EVENT DATE: 2019
